FAERS Safety Report 5134056-8 (Version None)
Quarter: 2006Q4

REPORT INFORMATION
  Report Type: 
  Country: None (occurrence: None)
  Receive Date: 20061019
  Receipt Date: 20061002
  Transmission Date: 20070319
  Serious: Yes (Hospitalization)
  Sender: FDA-Public Use
  Company Number: REM_00269_2006

PATIENT
  Age: 57 Year
  Sex: Female

DRUGS (8)
  1. REMODULIN [Suspect]
     Indication: PULMONARY HYPERTENSION
     Dosage: 48.5 NG/KG/MIN IV
     Route: 042
     Dates: start: 20060308
  2. GEMFIBROZIL [Concomitant]
  3. LANSOPRAZOLE [Concomitant]
  4. ASPIRIN [Concomitant]
  5. CLOPIDOGREL [Concomitant]
  6. CLOTRIMAZOLE [Concomitant]
  7. FERROUS FUMARATE [Concomitant]
  8. LORMETAZEPAM [Concomitant]

REACTIONS (8)
  - CATHETER SEPSIS [None]
  - CENTRAL LINE INFECTION [None]
  - CLOSTRIDIAL INFECTION [None]
  - DYSPNOEA [None]
  - PALLOR [None]
  - PURULENT DISCHARGE [None]
  - SINUS TACHYCARDIA [None]
  - STENOTROPHOMONAS INFECTION [None]
